FAERS Safety Report 8443326-7 (Version None)
Quarter: 2012Q2

REPORT INFORMATION
  Report Type: 
  Country: None (occurrence: None)
  Receive Date: 20120618
  Receipt Date: 20120612
  Transmission Date: 20120825
  Serious: Yes (Hospitalization)
  Sender: FDA-Public Use
  Company Number: US-AMGEN-USASP2012036902

PATIENT
  Sex: Female

DRUGS (3)
  1. ENBREL [Suspect]
     Indication: RHEUMATOID ARTHRITIS
     Dosage: 25 MG, 2 TIMES/WK
     Dates: start: 20030301, end: 20120531
  2. LOVENOX [Concomitant]
     Dosage: UNK
  3. ENBREL [Suspect]
     Indication: FIBROMYALGIA

REACTIONS (10)
  - ERYTHEMA [None]
  - CONTUSION [None]
  - HAEMOGLOBIN DECREASED [None]
  - POLYP [None]
  - HYPERSENSITIVITY [None]
  - RHEUMATOID ARTHRITIS [None]
  - HAEMORRHAGE [None]
  - MOVEMENT DISORDER [None]
  - INJECTION SITE PAIN [None]
  - SINUS DISORDER [None]
